FAERS Safety Report 6383204-0 (Version None)
Quarter: 2009Q3

REPORT INFORMATION
  Report Type: 
  Country: None (occurrence: None)
  Receive Date: 20090929
  Receipt Date: 20090914
  Transmission Date: 20100115
  Serious: Yes (Other)
  Sender: FDA-Public Use
  Company Number: US-1168363

PATIENT
  Sex: Male

DRUGS (3)
  1. BSS [Suspect]
     Indication: CATARACT OPERATION
     Dosage: (INTRAOOULAR)
     Route: 031
     Dates: start: 20090119, end: 20090119
  2. EPINEPHRINE [Concomitant]
  3. OCCUCOAT [Concomitant]

REACTIONS (1)
  - CORNEAL OPACITY [None]
